FAERS Safety Report 4779068-9 (Version None)
Quarter: 2005Q3

REPORT INFORMATION
  Report Type: 
  Country: None (occurrence: None)
  Receive Date: 20050923
  Receipt Date: 20050916
  Transmission Date: 20060218
  Serious: Yes (Hospitalization)
  Sender: FDA-Public Use
  Company Number: FRP05000727

PATIENT
  Age: 77 Year
  Sex: Female

DRUGS (3)
  1. ACTONEL [Suspect]
     Indication: OSTEOPOROSIS
     Dosage: 35 MG 1/WEEK ORAL
     Route: 048
  2. CELEBREX [Suspect]
     Dosage: ORAL
     Route: 048
     Dates: end: 20050310
  3. CLONAZEPAM [Suspect]
     Dosage: ORAL
     Route: 048

REACTIONS (1)
  - PERIPHERAL ISCHAEMIA [None]
